FAERS Safety Report 11169253 (Version 3)
Quarter: 2015Q3

REPORT INFORMATION
  Report Type: Spontaneous
  Country: US (occurrence: US)
  Receive Date: 20150605
  Receipt Date: 20150731
  Transmission Date: 20151125
  Serious: Yes (Other)
  Sender: FDA-Public Use
  Company Number: US-PFIZER INC-2015186801

PATIENT
  Age: 25 Year
  Sex: Male

DRUGS (1)
  1. BENEFIX [Suspect]
     Active Substance: COAGULATION FACTOR IX RECOMBINANT HUMAN\ISOPROPYL ALCOHOL
     Indication: HAEMORRHAGE
     Dosage: UNK (6000 UNITS, 1 TO 2 A DAY)
     Dates: start: 20150521, end: 20150528

REACTIONS (1)
  - No adverse event [Recovered/Resolved]

NARRATIVE: CASE EVENT DATE: 20150521
